FAERS Safety Report 4376164-5 (Version None)
Quarter: 2004Q2

REPORT INFORMATION
  Report Type: 
  Country: None (occurrence: None)
  Receive Date: 20040609
  Receipt Date: 20040609
  Transmission Date: 20050107
  Serious: Yes (Life-Threatening, Hospitalization)
  Sender: FDA-Public Use
  Company Number: None

PATIENT
  Age: 10 Year
  Sex: Female

DRUGS (1)
  1. LAMICTAL [Suspect]
     Indication: CONVULSION
     Dosage: 25 MG QHS FOR WEEKS 1+2 INCREASE TO 25 MG BID IN WEEK 3
     Dates: start: 20040301

REACTIONS (1)
  - STEVENS-JOHNSON SYNDROME [None]
